FAERS Safety Report 25062366 (Version 1)
Quarter: 2025Q1

REPORT INFORMATION
  Report Type: Spontaneous
  Country: IN (occurrence: IN)
  Receive Date: 20250311
  Receipt Date: 20250311
  Transmission Date: 20250409
  Serious: Yes (Hospitalization, Other)
  Sender: LUPIN
  Company Number: IN-LUPIN LIMITED-2025-02116

PATIENT

DRUGS (3)
  1. RIFAMPIN [Suspect]
     Active Substance: RIFAMPIN
     Indication: Meningitis bacterial
     Route: 065
  2. MINOCYCLINE [Suspect]
     Active Substance: MINOCYCLINE HYDROCHLORIDE
     Indication: Meningitis bacterial
     Route: 065
  3. COLISTIN [Suspect]
     Active Substance: COLISTIN
     Indication: Meningitis bacterial
     Route: 065

REACTIONS (2)
  - Meningitis chemical [Unknown]
  - Off label use [Unknown]
